FAERS Safety Report 4888960-6 (Version None)
Quarter: 2005Q4

REPORT INFORMATION
  Report Type: 
  Country: None (occurrence: None)
  Receive Date: 20051216
  Receipt Date: 20050901
  Transmission Date: 20060501
  Serious: No
  Sender: FDA-Public Use
  Company Number: USA0507103558

PATIENT
  Age: 73 Year
  Sex: Male
  Weight: 79 kg

DRUGS (3)
  1. CIALIS [Suspect]
     Indication: ERECTILE DYSFUNCTION
     Dosage: 20 MG
     Dates: start: 20050201
  2. MULTI-VITAMIN [Concomitant]
  3. NAPROXEN SODIUM [Concomitant]

REACTIONS (3)
  - ASTHENIA [None]
  - FALL [None]
  - HYPOAESTHESIA [None]
